FAERS Safety Report 16988211 (Version 2)
Quarter: 2025Q2

REPORT INFORMATION
  Report Type: Report from Study
  Country: IT (occurrence: IT)
  Receive Date: 20191104
  Receipt Date: 20250613
  Transmission Date: 20250717
  Serious: Yes (Death, Other)
  Sender: ROCHE
  Company Number: IT-ROCHE-2451602

PATIENT

DRUGS (2)
  1. RITUXIMAB [Suspect]
     Active Substance: RITUXIMAB
     Indication: Neuromyelitis optica spectrum disorder
     Route: 042
  2. RITUXIMAB [Suspect]
     Active Substance: RITUXIMAB
     Dosage: FREQUENCY TEXT:FOR 4 WEEKS
     Route: 042

REACTIONS (16)
  - Urinary tract infection [Unknown]
  - Off label use [Unknown]
  - Respiratory tract infection [Unknown]
  - Syncope [Unknown]
  - Dyspnoea [Unknown]
  - Rash [Unknown]
  - Intentional product use issue [Unknown]
  - Neutropenia [Unknown]
  - Sepsis [Fatal]
  - COVID-19 [Unknown]
  - Mycobacterium avium complex infection [Unknown]
  - Urticaria [Unknown]
  - Leukopenia [Unknown]
  - Hypogammaglobulinaemia [Unknown]
  - Lymphopenia [Unknown]
  - Treatment failure [Unknown]
